FAERS Safety Report 21502130 (Version 4)
Quarter: 2023Q2

REPORT INFORMATION
  Report Type: Spontaneous
  Country: CA (occurrence: CA)
  Receive Date: 20221025
  Receipt Date: 20230410
  Transmission Date: 20230721
  Serious: Yes (Other)
  Sender: FDA-Public Use
  Company Number: CA-PFIZER INC-202201249216

PATIENT
  Age: 76 Year
  Sex: Male

DRUGS (1)
  1. XELJANZ [Suspect]
     Active Substance: TOFACITINIB CITRATE
     Indication: Rheumatoid arthritis
     Dosage: 5 MG 2X/DAY
     Route: 048
     Dates: start: 20150617

REACTIONS (11)
  - Bladder neoplasm [Recovered/Resolved]
  - Arthropathy [Not Recovered/Not Resolved]
  - Diabetes mellitus [Unknown]
  - Pain [Unknown]
  - Joint swelling [Unknown]
  - Osteoarthritis [Unknown]
  - Arthritis [Unknown]
  - Pain in extremity [Unknown]
  - Arthralgia [Unknown]
  - Swelling [Unknown]
  - Aphonia [Not Recovered/Not Resolved]

NARRATIVE: CASE EVENT DATE: 20220101
